FAERS Safety Report 11929370 (Version 1)
Quarter: 2016Q1

REPORT INFORMATION
  Report Type: Spontaneous
  Country: US (occurrence: None)
  Receive Date: 20160119
  Receipt Date: 20160119
  Transmission Date: 20160526
  Serious: Yes (Death)
  Sender: FDA-Public Use
  Company Number: None

PATIENT
  Age: 68 Year
  Sex: Male
  Weight: 140.16 kg

DRUGS (1)
  1. VENLAFAXIN [Suspect]
     Active Substance: VENLAFAXINE HYDROCHLORIDE
     Indication: DEPRESSION
     Dosage: 1 CAP 7 DAYS THEN 2 CAP. 14 DAYS 1 DAILY AM 2 DAILY AM PM BY MOUTH
     Route: 048
     Dates: start: 20151003, end: 20151015

REACTIONS (9)
  - Anxiety [None]
  - Insomnia [None]
  - Disturbance in attention [None]
  - Completed suicide [None]
  - Dizziness [None]
  - Gun shot wound [None]
  - Suicidal ideation [None]
  - Tachyphrenia [None]
  - Confusional state [None]

NARRATIVE: CASE EVENT DATE: 20151015
